FAERS Safety Report 11129711 (Version 1)
Quarter: 2015Q2

REPORT INFORMATION
  Report Type: Spontaneous
  Country: FR (occurrence: FR)
  Receive Date: 20150521
  Receipt Date: 20150521
  Transmission Date: 20150821
  Serious: Yes (Other)
  Sender: FDA-Public Use
  Company Number: FR-JNJFOC-20150511079

PATIENT
  Age: 0 Year

DRUGS (3)
  1. IMUREL [Suspect]
     Active Substance: AZATHIOPRINE SODIUM
     Indication: COLITIS ULCERATIVE
     Route: 064
     Dates: start: 20140621, end: 20150207
  2. REMICADE [Suspect]
     Active Substance: INFLIXIMAB
     Indication: COLITIS ULCERATIVE
     Route: 064
     Dates: start: 20140621, end: 20141218
  3. FIVASA [Suspect]
     Active Substance: MESALAMINE
     Indication: COLITIS ULCERATIVE
     Route: 064
     Dates: start: 20140621, end: 20150207

REACTIONS (4)
  - Volvulus [Unknown]
  - Foetal exposure during pregnancy [Unknown]
  - Premature baby [Unknown]
  - Meconium peritonitis [Unknown]

NARRATIVE: CASE EVENT DATE: 2014
